FAERS Safety Report 16895450 (Version 1)
Quarter: 2019Q4

REPORT INFORMATION
  Report Type: Spontaneous
  Country: US (occurrence: US)
  Receive Date: 20190814
  Receipt Date: 20190814
  Transmission Date: 20200122
  Serious: Yes (Disabling)
  Sender: FDA-Public Use
  Company Number: None

PATIENT
  Age: 73 Year
  Sex: Female
  Weight: 81.19 kg

DRUGS (11)
  1. JANUVIA [Suspect]
     Active Substance: SITAGLIPTIN PHOSPHATE
     Indication: ORAL PAIN
     Route: 048
     Dates: start: 20190530, end: 20190612
  2. METFORMIN [Concomitant]
     Active Substance: METFORMIN HYDROCHLORIDE
  3. DILTIAZERN [Concomitant]
  4. LOSARTAN POTASSIUM. [Concomitant]
     Active Substance: LOSARTAN POTASSIUM
  5. CALTRATE [Concomitant]
     Active Substance: CALCIUM CARBONATE
  6. FISH OIL [Concomitant]
     Active Substance: FISH OIL
  7. OMEPRAZOLE. [Concomitant]
     Active Substance: OMEPRAZOLE
  8. MELOXICAM. [Concomitant]
     Active Substance: MELOXICAM
  9. ROSUVASTATIN. [Concomitant]
     Active Substance: ROSUVASTATIN
  10. BABY ASPRIN [Concomitant]
     Active Substance: ASPIRIN
  11. ATENOLOL/CHLORTHAL [Concomitant]

REACTIONS (5)
  - Rhinorrhoea [None]
  - Musculoskeletal stiffness [None]
  - Visual impairment [None]
  - Urinary incontinence [None]
  - Peripheral swelling [None]
